FAERS Safety Report 9462914 (Version 1)
Quarter: 2013Q3

REPORT INFORMATION
  Report Type: Spontaneous
  Country: DE (occurrence: None)
  Receive Date: 20130814
  Receipt Date: 20130814
  Transmission Date: 20140515
  Serious: Yes (Other)
  Sender: FDA-Public Use
  Company Number: 1308-1007

PATIENT
  Age: 76 Year
  Sex: Female

DRUGS (2)
  1. EYLEA (AFLIBERCEPT) (INJECTION) (AFLIBERCEPT) [Suspect]
     Indication: AGE-RELATED MACULAR DEGENERATION
     Dates: start: 201304
  2. MAXITROL [Suspect]
     Indication: RETINAL TEAR
     Dosage: 5 GTT, 1 IN 1 D
     Dates: start: 201304, end: 201306

REACTIONS (2)
  - Retinal tear [None]
  - Visual acuity reduced [None]
